FAERS Safety Report 7719123-4 (Version None)
Quarter: 2011Q3

REPORT INFORMATION
  Report Type: 
  Country: None (occurrence: None)
  Receive Date: 20110830
  Receipt Date: 20110829
  Transmission Date: 20111222
  Serious: Yes (Other)
  Sender: FDA-Public Use
  Company Number: US-PFIZER INC-2011201026

PATIENT
  Sex: Female
  Weight: 81.633 kg

DRUGS (3)
  1. XANAX [Concomitant]
     Indication: SLEEP DISORDER
     Dosage: 0.5 MG, AS NEEDED
  2. CHANTIX [Suspect]
     Dosage: UNK
     Route: 048
     Dates: start: 20110101, end: 20110824
  3. CHANTIX [Suspect]
     Indication: SMOKING CESSATION THERAPY
     Dosage: 0.5 MG, 1X/DAY
     Route: 048
     Dates: start: 20110710, end: 20110101

REACTIONS (10)
  - STRESS [None]
  - ABNORMAL DREAMS [None]
  - IRRITABILITY [None]
  - AGGRESSION [None]
  - DISTURBANCE IN ATTENTION [None]
  - ANGER [None]
  - EMOTIONAL DISORDER [None]
  - FEELING ABNORMAL [None]
  - SUICIDAL IDEATION [None]
  - HOSTILITY [None]
